FAERS Safety Report 25533480 (Version 2)
Quarter: 2025Q3

REPORT INFORMATION
  Report Type: Spontaneous
  Country: US (occurrence: US)
  Receive Date: 20250709
  Receipt Date: 20250828
  Transmission Date: 20251021
  Serious: No
  Sender: ALEMBIC
  Company Number: US-ALEMBIC PHARMACUETICALS LIMITED-2025SCAL000735

PATIENT

DRUGS (1)
  1. LIDOCAINE AND PRILOCAINE [Suspect]
     Active Substance: LIDOCAINE\PRILOCAINE
     Indication: Local anaesthesia
     Route: 061
     Dates: start: 20250626, end: 20250626

REACTIONS (3)
  - Drug ineffective [Unknown]
  - Product substitution issue [Unknown]
  - Suspected product quality issue [Unknown]

NARRATIVE: CASE EVENT DATE: 20250626
